FAERS Safety Report 7108217-2 (Version None)
Quarter: 2010Q4

REPORT INFORMATION
  Report Type: 
  Country: None (occurrence: None)
  Receive Date: 20101117
  Receipt Date: 20101103
  Transmission Date: 20110411
  Serious: Yes (Hospitalization, Other)
  Sender: FDA-Public Use
  Company Number: PHHY2010BR74511

PATIENT
  Sex: Female
  Weight: 78 kg

DRUGS (5)
  1. EXFORGE [Suspect]
     Indication: HYPERTENSION
     Dosage: 1 TABLET DAILY
     Route: 048
  2. VITALUX PLUS (NVO) [Suspect]
     Indication: EYE DISORDER
     Dosage: 1 TAB DAILY
     Route: 048
     Dates: end: 20101102
  3. ACETYLSALICYLIC ACID SRT [Concomitant]
     Indication: ANTICOAGULANT THERAPY
     Dosage: 1 TAB DAILY
     Route: 048
  4. CLOPIDEGREL [Concomitant]
     Dosage: 75 MG, DAILYO
     Route: 048
  5. CRESTOR [Concomitant]
     Dosage: 20 MG, DAILY
     Route: 048

REACTIONS (3)
  - ANGIOPLASTY [None]
  - CATHETERISATION CARDIAC [None]
  - STENT PLACEMENT [None]
